FAERS Safety Report 11060627 (Version 4)
Quarter: 2015Q3

REPORT INFORMATION
  Report Type: Report from Study
  Country: ES (occurrence: ES)
  Receive Date: 20150423
  Receipt Date: 20150728
  Transmission Date: 20151125
  Serious: Yes (Hospitalization, Other)
  Sender: FDA-Public Use
  Company Number: ES-GILEAD-2015-0149425

PATIENT
  Age: 59 Year
  Sex: Female
  Weight: 55 kg

DRUGS (6)
  1. IDELALISIB [Suspect]
     Active Substance: IDELALISIB
     Indication: NON-HODGKIN^S LYMPHOMA UNSPECIFIED HISTOLOGY INDOLENT
     Dosage: 150 MG, BID
     Route: 048
     Dates: start: 20150108
  2. ENTECAVIR. [Concomitant]
     Active Substance: ENTECAVIR
     Dosage: UNK
     Route: 065
     Dates: start: 20150109
  3. SEPTRIN [Concomitant]
     Active Substance: SULFAMETHOXAZOLE\TRIMETHOPRIM
     Dosage: UNK
     Route: 065
     Dates: start: 20150108
  4. ACTOL MORNIFLUMATO [Concomitant]
     Dosage: UNK
     Route: 065
     Dates: start: 20150108
  5. RITUXIMAB [Suspect]
     Active Substance: RITUXIMAB
     Indication: NON-HODGKIN^S LYMPHOMA UNSPECIFIED HISTOLOGY INDOLENT
     Dosage: 623 MG, CYCLICAL
     Route: 042
     Dates: start: 20150108
  6. BENDAMUSTINE [Suspect]
     Active Substance: BENDAMUSTINE
     Indication: NON-HODGKIN^S LYMPHOMA UNSPECIFIED HISTOLOGY INDOLENT
     Dosage: 749 MG, CYCLICAL
     Route: 042
     Dates: start: 20150108

REACTIONS (4)
  - Diarrhoea [Recovered/Resolved with Sequelae]
  - Protein total decreased [None]
  - Computerised tomogram abdomen abnormal [None]
  - Hypoalbuminaemia [Recovered/Resolved with Sequelae]

NARRATIVE: CASE EVENT DATE: 20150416
